FAERS Safety Report 11273525 (Version 1)
Quarter: 2015Q3

REPORT INFORMATION
  Report Type: Spontaneous
  Country: US (occurrence: US)
  Receive Date: 20150715
  Receipt Date: 20150715
  Transmission Date: 20151125
  Serious: No
  Sender: FDA-Public Use
  Company Number: US-ENDO PHARMACEUTICALS INC.-201408031

PATIENT
  Age: 65 Year
  Sex: Male
  Weight: 78.09 kg

DRUGS (4)
  1. LISINOPRIL. [Concomitant]
     Active Substance: LISINOPRIL
  2. TESTOSTERONE. [Concomitant]
     Active Substance: TESTOSTERONE
  3. EDEX [Suspect]
     Active Substance: ALPROSTADIL
     Indication: ERECTILE DYSFUNCTION
     Dosage: AS NEEDED
     Route: 017
  4. CABERGOLINE. [Concomitant]
     Active Substance: CABERGOLINE

REACTIONS (1)
  - Drug ineffective [Not Recovered/Not Resolved]
